FAERS Safety Report 8534135-9 (Version None)
Quarter: 2012Q3

REPORT INFORMATION
  Report Type: 
  Country: None (occurrence: None)
  Receive Date: 20120724
  Receipt Date: 20120718
  Transmission Date: 20120928
  Serious: Yes (Hospitalization)
  Sender: FDA-Public Use
  Company Number: US-B.I. PHARMACEUTICALS,INC./RIDGEFIELD-2012-BP-16011BP

PATIENT
  Age: 85 Year
  Sex: Male

DRUGS (16)
  1. LISINOPRIL [Concomitant]
  2. ISOSORBIDE [Concomitant]
  3. FOLIC ACID [Concomitant]
  4. PRILOSEC [Concomitant]
     Route: 048
  5. METFORMIN HYDROCHLORIDE [Concomitant]
     Route: 048
  6. NITROSTAT [Concomitant]
     Route: 048
  7. INDERAL [Concomitant]
     Dosage: 30 MG
     Route: 048
  8. VENTOLIN [Concomitant]
     Indication: ASTHMA
     Route: 055
  9. LOSTATIN [Concomitant]
     Route: 048
  10. ADVAIR DISKUS 100/50 [Concomitant]
     Indication: ASTHMA
     Route: 055
  11. NEBULIZER [Concomitant]
     Indication: ASTHMA
  12. FUROSEMIDE [Concomitant]
     Indication: DIURETIC THERAPY
     Route: 048
  13. SPIRIVA [Suspect]
     Indication: ASTHMA
     Dosage: 18 MCG
     Route: 055
  14. METOPROLOL SUCCINATE [Concomitant]
  15. POTASSIUM CHLORIDE [Concomitant]
     Dosage: 20 MEQ
     Route: 048
  16. ASPIRIN [Concomitant]
     Indication: CARDIAC DISORDER
     Dosage: 81 MG
     Route: 048

REACTIONS (2)
  - CHEST PAIN [None]
  - DYSPNOEA [None]
